FAERS Safety Report 4379388-6 (Version None)
Quarter: 2004Q2

REPORT INFORMATION
  Report Type: 
  Country: None (occurrence: None)
  Receive Date: 20040617
  Receipt Date: 20040607
  Transmission Date: 20050107
  Serious: Yes (Death)
  Sender: FDA-Public Use
  Company Number: US-JNJFOC-20040302983

PATIENT
  Sex: Female
  Weight: 97.98 kg

DRUGS (27)
  1. REMICADE [Suspect]
     Route: 042
  2. REMICADE [Suspect]
     Route: 042
  3. REMICADE [Suspect]
     Route: 042
  4. REMICADE [Suspect]
     Indication: RHEUMATOID ARTHRITIS
     Dosage: FIRST INFUSION
     Route: 042
  5. PREDNISONE [Suspect]
  6. METHOTREXATE [Suspect]
     Route: 058
  7. PLAVIX [Concomitant]
  8. LEUCOVORIN [Concomitant]
     Dosage: 12-24 HOURS AFTER METHOTREXATE
  9. PHENOBARBITAL TAB [Concomitant]
     Dosage: IN THE EVENING
  10. PHENOBARBITAL TAB [Concomitant]
     Dosage: IN THE MORNING
  11. RANITIDINE [Concomitant]
  12. NAPROXEN [Concomitant]
  13. LASIX [Concomitant]
  14. POTASSIUM [Concomitant]
  15. NORCO [Concomitant]
  16. NORCO [Concomitant]
  17. ENBREL [Concomitant]
     Dosage: STARTED WHEN INCREASED PREDNISONE NOT SUFFICIENT
     Route: 058
  18. MULTI-VITAMINS [Concomitant]
  19. MULTI-VITAMINS [Concomitant]
  20. MULTI-VITAMINS [Concomitant]
  21. MULTI-VITAMINS [Concomitant]
  22. MULTI-VITAMINS [Concomitant]
  23. MULTI-VITAMINS [Concomitant]
  24. MULTI-VITAMINS [Concomitant]
  25. MULTI-VITAMINS [Concomitant]
  26. MILK THISTLE [Concomitant]
  27. HYDROCODONE BITARTRATE AND ACETAMINOPHEN [Concomitant]

REACTIONS (16)
  - ACUTE MYOCARDIAL INFARCTION [None]
  - ATHEROSCLEROSIS [None]
  - CARDIOMEGALY [None]
  - DIARRHOEA [None]
  - DISSEMINATED INTRAVASCULAR COAGULATION [None]
  - HISTOPLASMOSIS DISSEMINATED [None]
  - MULTI-ORGAN FAILURE [None]
  - NECROSIS [None]
  - OESOPHAGEAL CANDIDIASIS [None]
  - PULMONARY OEDEMA [None]
  - RENAL FAILURE [None]
  - SEPTIC SHOCK [None]
  - SPLEEN DISORDER [None]
  - URINE OUTPUT DECREASED [None]
  - VASCULITIS [None]
  - VIRAL INFECTION [None]
